FAERS Safety Report 5678560-2 (Version None)
Quarter: 2008Q1

REPORT INFORMATION
  Report Type: 
  Country: None (occurrence: None)
  Receive Date: 20080325
  Receipt Date: 20080310
  Transmission Date: 20080703
  Serious: Yes (Other)
  Sender: FDA-Public Use
  Company Number: MX-ELI_LILLY_AND_COMPANY-MX200803002383

PATIENT
  Age: 55 Year
  Sex: Female

DRUGS (2)
  1. ZACTOS [Suspect]
     Dosage: UNK, UNKNOWN
     Route: 065
     Dates: start: 20071201
  2. HUMALOG MIX 75/25 [Suspect]
     Dosage: UNK, UNKNOWN
     Route: 065
     Dates: start: 20071201

REACTIONS (2)
  - HEPATIC INFECTION [None]
  - LIVER DISORDER [None]
